FAERS Safety Report 6209333-X (Version None)
Quarter: 2009Q2

REPORT INFORMATION
  Report Type: 
  Country: None (occurrence: None)
  Receive Date: 20090529
  Receipt Date: 20090519
  Transmission Date: 20091009
  Serious: Yes (Death)
  Sender: FDA-Public Use
  Company Number: US-JNJCH-2009014532

PATIENT
  Sex: Female

DRUGS (1)
  1. INFANT'S PEDIACARE DECONGESTANT AND COUGH DROPS [Suspect]
     Indication: COUGH
     Dosage: TEXT:UNSPECIFIED
     Route: 048

REACTIONS (1)
  - DRUG TOXICITY [None]
